FAERS Safety Report 13860487 (Version 1)
Quarter: 2017Q3

REPORT INFORMATION
  Report Type: Spontaneous
  Country: US (occurrence: US)
  Receive Date: 20170811
  Receipt Date: 20170811
  Transmission Date: 20171127
  Serious: Yes (Other)
  Sender: FDA-Public Use
  Company Number: US-GLAXOSMITHKLINE-US2017108598

PATIENT
  Age: 43 Year
  Sex: Female

DRUGS (2)
  1. SARNA (CAMPHOR (NATURAL)\MENTHOL) [Suspect]
     Active Substance: CAMPHOR (NATURAL)\MENTHOL
     Indication: RASH PRURITIC
     Dosage: UNK
     Dates: start: 20170314, end: 20170314
  2. PRAMOXINE HYDROCHLORIDE CUTANEOUS LIQUID [Suspect]
     Active Substance: PRAMOXINE HYDROCHLORIDE
     Indication: RASH PRURITIC
     Dosage: UNK

REACTIONS (14)
  - Condition aggravated [Not Recovered/Not Resolved]
  - Application site erythema [Not Recovered/Not Resolved]
  - Application site warmth [Not Recovered/Not Resolved]
  - Dermatitis contact [Unknown]
  - Off label use [Unknown]
  - Application site induration [Not Recovered/Not Resolved]
  - Cellulitis [Unknown]
  - Application site rash [Not Recovered/Not Resolved]
  - Application site swelling [Not Recovered/Not Resolved]
  - Application site discomfort [Not Recovered/Not Resolved]
  - Hypersensitivity [Not Recovered/Not Resolved]
  - Application site discolouration [Recovering/Resolving]
  - Emergency care examination [Unknown]
  - Application site papules [Not Recovered/Not Resolved]

NARRATIVE: CASE EVENT DATE: 20170315
